FAERS Safety Report 6071407-4 (Version None)
Quarter: 2009Q1

REPORT INFORMATION
  Report Type: 
  Country: None (occurrence: None)
  Receive Date: 20090130
  Receipt Date: 20090123
  Transmission Date: 20090719
  Serious: Yes (Hospitalization)
  Sender: FDA-Public Use
  Company Number: 200711926

PATIENT
  Age: 56 Year
  Sex: Male

DRUGS (9)
  1. VIVAGLOBIN [Suspect]
     Indication: PRIMARY IMMUNODEFICIENCY SYNDROME
     Dosage: SC
     Route: 058
  2. PROVENTIL /00139501/ [Concomitant]
  3. ADVAIR DISKUS 100/50 [Concomitant]
  4. GLUCOPHAGE [Concomitant]
  5. ACTOS [Concomitant]
  6. LIPITOR [Concomitant]
  7. PRINIVIL [Concomitant]
  8. BACTRIM DS [Concomitant]
  9. TESTOSTERONE [Concomitant]

REACTIONS (15)
  - BACK PAIN [None]
  - BLOOD GLUCOSE INCREASED [None]
  - CHEST PAIN [None]
  - COMPUTERISED TOMOGRAM ABNORMAL [None]
  - LUNG CONSOLIDATION [None]
  - LUNG INFILTRATION [None]
  - MENINGITIS BACTERIAL [None]
  - PLEURAL EFFUSION [None]
  - PNEUMONIA BACTERIAL [None]
  - RALES [None]
  - RENAL CYST [None]
  - RESPIRATORY RATE INCREASED [None]
  - RHONCHI [None]
  - VASCULAR CALCIFICATION [None]
  - WHITE BLOOD CELL COUNT INCREASED [None]
